FAERS Safety Report 13078665 (Version 1)
Quarter: 2017Q1

REPORT INFORMATION
  Report Type: Spontaneous
  Country: US (occurrence: US)
  Receive Date: 20170102
  Receipt Date: 20170102
  Transmission Date: 20170428
  Serious: Yes (Hospitalization, Other)
  Sender: FDA-Public Use
  Company Number: US-TEVA-724934USA

PATIENT

DRUGS (1)
  1. LISINOPRIL. [Suspect]
     Active Substance: LISINOPRIL
     Indication: BLOOD PRESSURE MEASUREMENT
     Route: 065

REACTIONS (10)
  - Adverse event [Unknown]
  - Pyrexia [Unknown]
  - Blood urine present [Unknown]
  - Perineal pain [Not Recovered/Not Resolved]
  - Constipation [Not Recovered/Not Resolved]
  - Bacteraemia [Unknown]
  - Dysuria [Recovering/Resolving]
  - Asthma [Unknown]
  - Bladder catheterisation [Recovered/Resolved]
  - Transurethral prostatectomy [Unknown]

NARRATIVE: CASE EVENT DATE: 201404
